FAERS Safety Report 15884947 (Version 2)
Quarter: 2019Q1

REPORT INFORMATION
  Report Type: Report from Study
  Country: CA (occurrence: CA)
  Receive Date: 20190129
  Receipt Date: 20190226
  Transmission Date: 20190417
  Serious: Yes (Death, Hospitalization)
  Sender: FDA-Public Use
  Company Number: CA-EISAI MEDICAL RESEARCH-EC-2019-050758

PATIENT
  Age: 52 Year
  Sex: Male

DRUGS (9)
  1. LENVIMA [Suspect]
     Active Substance: LENVATINIB
     Indication: RENAL CELL CARCINOMA
     Route: 048
     Dates: end: 2019
  2. BISOPROLOL [Concomitant]
     Active Substance: BISOPROLOL
  3. HYDROMORPH CONTIN [Concomitant]
     Active Substance: HYDROMORPHONE
  4. SANDOZ TAMSULOSIN [Concomitant]
     Active Substance: TAMSULOSIN
  5. CO-ONDANSETRON [Concomitant]
  6. PMS HYDROMORPHONE [Concomitant]
  7. ZINC GLUCONATE [Concomitant]
     Active Substance: ZINC GLUCONATE
  8. LORAZEPAM SUBLINGUAL [Concomitant]
  9. TEVA PANTOPRAZOLE [Concomitant]

REACTIONS (4)
  - Cancer pain [Unknown]
  - Fatigue [Unknown]
  - Death [Fatal]
  - Anxiety [Unknown]

NARRATIVE: CASE EVENT DATE: 20190108
